FAERS Safety Report 8817840 (Version 1)
Quarter: 2012Q4

REPORT INFORMATION
  Report Type: 
  Country: US (occurrence: US)
  Receive Date: 20121004
  Receipt Date: 20121004
  Transmission Date: 20130627
  Serious: Yes (Death, Other)
  Sender: FDA-Public Use
  Company Number: US-ROCHE-1134432

PATIENT
  Sex: Male

DRUGS (2)
  1. RITUXAN [Suspect]
     Indication: CHRONIC LYMPHOCYTIC LEUKAEMIA
     Route: 065
     Dates: start: 20000601
  2. RITUXAN [Suspect]
     Indication: LYMPHOCYTIC LYMPHOMA
     Route: 065
     Dates: start: 200007

REACTIONS (2)
  - Death [Fatal]
  - Disease progression [Unknown]
